FAERS Safety Report 17752425 (Version 1)
Quarter: 2020Q2

REPORT INFORMATION
  Report Type: Spontaneous
  Country: SE (occurrence: SE)
  Receive Date: 20200506
  Receipt Date: 20200506
  Transmission Date: 20200714
  Serious: Yes (Other)
  Sender: FDA-Public Use
  Company Number: SE-BAYER-2020-073328

PATIENT
  Sex: Female
  Weight: 67 kg

DRUGS (1)
  1. YASMIN [Suspect]
     Active Substance: DROSPIRENONE\ETHINYL ESTRADIOL

REACTIONS (5)
  - Dysmenorrhoea [Recovered/Resolved]
  - Uterine haemorrhage [Recovered/Resolved]
  - Uterine cyst [Recovered/Resolved]
  - Cyst rupture [Recovered/Resolved]
  - Depressed mood [Recovered/Resolved]
